FAERS Safety Report 23632657 (Version 1)
Quarter: 2024Q1

REPORT INFORMATION
  Report Type: Spontaneous
  Country: US (occurrence: US)
  Receive Date: 20240314
  Receipt Date: 20240314
  Transmission Date: 20240410
  Serious: No
  Sender: FDA-Public Use
  Company Number: ENDB23-04376

PATIENT
  Age: 68 Year
  Sex: Male

DRUGS (4)
  1. XIAFLEX [Suspect]
     Active Substance: COLLAGENASE CLOSTRIDIUM HISTOLYTICUM
     Indication: Dupuytren^s contracture
     Dosage: UNK UNKNOWN, UNKNOWN (RIGHT)
     Route: 051
     Dates: start: 20150209
  2. XIAFLEX [Suspect]
     Active Substance: COLLAGENASE CLOSTRIDIUM HISTOLYTICUM
     Dosage: UNK UNKNOWN, UNKNOWN (LEFT)
     Route: 051
     Dates: start: 20150224
  3. XIAFLEX [Suspect]
     Active Substance: COLLAGENASE CLOSTRIDIUM HISTOLYTICUM
     Dosage: UNK UNKNOWN, UNKNOWN (RIGHT, TWO BOTTLES THREE CONSECUTIVE DAYS)
     Route: 051
     Dates: start: 20181119
  4. XIAFLEX [Suspect]
     Active Substance: COLLAGENASE CLOSTRIDIUM HISTOLYTICUM
     Dosage: UNK UNKNOWN, UNKNOWN (LEFT, TWO BOTTLES THREE CONSECUTIVE DAYS)
     Route: 051
     Dates: start: 20181120

REACTIONS (5)
  - Peripheral swelling [Unknown]
  - Contusion [Unknown]
  - Skin laceration [Unknown]
  - Injection site haemorrhage [Unknown]
  - Off label use [Unknown]
